FAERS Safety Report 18038292 (Version 2)
Quarter: 2020Q3

REPORT INFORMATION
  Report Type: Report from Study
  Country: None (occurrence: US)
  Receive Date: 20200718
  Receipt Date: 20200922
  Transmission Date: 20201103
  Serious: Yes (Other)
  Sender: FDA-Public Use
  Company Number: US-ABBVIE-20K-163-3485802-00

PATIENT
  Sex: Female

DRUGS (2)
  1. RINVOQ [Suspect]
     Active Substance: UPADACITINIB
     Indication: RHEUMATOID ARTHRITIS
     Route: 048
  2. RINVOQ [Suspect]
     Active Substance: UPADACITINIB
     Route: 048

REACTIONS (6)
  - Knee arthroplasty [Unknown]
  - Ankle fracture [Unknown]
  - Weight increased [Unknown]
  - Joint arthroplasty [Unknown]
  - Joint range of motion decreased [Unknown]
  - Joint noise [Unknown]

NARRATIVE: CASE EVENT DATE: 2019
